FAERS Safety Report 17421386 (Version 2)
Quarter: 2020Q4

REPORT INFORMATION
  Report Type: Spontaneous
  Country: GB (occurrence: GB)
  Receive Date: 20200214
  Receipt Date: 20201208
  Transmission Date: 20210113
  Serious: Yes (Death, Hospitalization)
  Sender: FDA-Public Use
  Company Number: GB-INTERCEPT-PM2020000332

PATIENT
  Age: 81 Year
  Sex: Female

DRUGS (2)
  1. OCALIVA [Suspect]
     Active Substance: OBETICHOLIC ACID
     Dosage: 10 MG, UNK
     Route: 048
     Dates: start: 201907
  2. OCALIVA [Suspect]
     Active Substance: OBETICHOLIC ACID
     Indication: PRIMARY BILIARY CHOLANGITIS
     Dosage: 5 MG, UNK
     Route: 048
     Dates: start: 201812

REACTIONS (4)
  - Hepatic cirrhosis [Fatal]
  - Cardiac failure [Fatal]
  - Primary biliary cholangitis [Fatal]
  - Pneumonia [Fatal]
